FAERS Safety Report 5668485-0 (Version None)
Quarter: 2008Q1

REPORT INFORMATION
  Report Type: 
  Country: None (occurrence: None)
  Receive Date: 20080315
  Receipt Date: 20080225
  Transmission Date: 20080703
  Serious: No
  Sender: FDA-Public Use
  Company Number: US-ABBOTT-08P-163-0440050-00

PATIENT
  Age: 50 Year
  Sex: Female
  Weight: 60.382 kg

DRUGS (6)
  1. HUMIRA [Suspect]
     Indication: RHEUMATOID ARTHRITIS
     Route: 058
     Dates: start: 20080101
  2. METHOTREXATE [Concomitant]
     Indication: RHEUMATOID ARTHRITIS
  3. BUPROPION HCL [Concomitant]
     Indication: DEPRESSION
  4. FOLIC ACID [Concomitant]
     Indication: RHEUMATOID ARTHRITIS
  5. VALPROATE SODIUM [Concomitant]
     Indication: STRESS
  6. VALPROATE SODIUM [Concomitant]
     Indication: ANXIETY

REACTIONS (1)
  - DRUG ADMINISTRATION ERROR [None]
